FAERS Safety Report 21059117 (Version 2)
Quarter: 2022Q3

REPORT INFORMATION
  Report Type: Spontaneous
  Country: FR (occurrence: FR)
  Receive Date: 20220708
  Receipt Date: 20220727
  Transmission Date: 20221027
  Serious: Yes (Other)
  Sender: FDA-Public Use
  Company Number: FR-ROCHE-3117702

PATIENT
  Age: 42 Year
  Sex: Male

DRUGS (6)
  1. ISOTRETINOIN [Suspect]
     Active Substance: ISOTRETINOIN
     Indication: Squamous cell carcinoma
     Dosage: 1 MILLIGRAM/KILOGRAM, QD
     Route: 065
  2. ISOTRETINOIN [Suspect]
     Active Substance: ISOTRETINOIN
     Dosage: 1 MILLIGRAM/KILOGRAM, QD
     Route: 048
  3. INTERFERON ALFA-2A [Suspect]
     Active Substance: INTERFERON ALFA-2A
     Indication: Squamous cell carcinoma
     Dosage: UNK, QD, 3MUI
     Route: 065
  4. INTERFERON ALFA-2A [Suspect]
     Active Substance: INTERFERON ALFA-2A
     Dosage: UNK, QD (3 MUI, QD (1/DAY))
     Route: 058
  5. CIDOFOVIR [Suspect]
     Active Substance: CIDOFOVIR
     Indication: Product used for unknown indication
     Dosage: 5 MILLIGRAM/KILOGRAM, (ON WEEKS 0, 1, 3 AND 5)
     Route: 042
  6. CAPECITABINE [Concomitant]
     Active Substance: CAPECITABINE
     Indication: Product used for unknown indication
     Dosage: 1.5 MILLIGRAM, BID (0.5 DAY)
     Route: 048

REACTIONS (4)
  - Major depression [Recovered/Resolved]
  - Renal failure [Unknown]
  - Off label use [Unknown]
  - Product use in unapproved indication [Unknown]
